FAERS Safety Report 12943744 (Version 1)
Quarter: 2016Q4

REPORT INFORMATION
  Report Type: Spontaneous
  Country: US (occurrence: US)
  Receive Date: 20161115
  Receipt Date: 20161115
  Transmission Date: 20170207
  Serious: No
  Sender: FDA-Public Use
  Company Number: US-ROCHE-1718795

PATIENT
  Age: 58 Year
  Sex: Male
  Weight: 179 kg

DRUGS (4)
  1. TAMIFLU [Suspect]
     Active Substance: OSELTAMIVIR PHOSPHATE
     Indication: INFLUENZA
     Route: 048
     Dates: start: 20160226, end: 20160229
  2. IBUPROFEN. [Concomitant]
     Active Substance: IBUPROFEN
     Indication: UPPER RESPIRATORY TRACT INFECTION
     Dosage: EVERY 6-8 HRS
     Route: 048
     Dates: start: 20160226
  3. TAMIFLU [Suspect]
     Active Substance: OSELTAMIVIR PHOSPHATE
     Indication: UPPER RESPIRATORY TRACT INFECTION
  4. CODEINE [Concomitant]
     Active Substance: CODEINE
     Indication: COUGH
     Dosage: EVERY 4-6 HRS
     Route: 048
     Dates: start: 20160226

REACTIONS (2)
  - Rash papular [Unknown]
  - Rash [Unknown]

NARRATIVE: CASE EVENT DATE: 20160229
